FAERS Safety Report 9408053 (Version 1)
Quarter: 2013Q3

REPORT INFORMATION
  Report Type: Spontaneous
  Country: CH (occurrence: CH)
  Receive Date: 20130718
  Receipt Date: 20130718
  Transmission Date: 20140515
  Serious: Yes (Other)
  Sender: FDA-Public Use
  Company Number: CH-BRISTOL-MYERS SQUIBB COMPANY-19120864

PATIENT
  Sex: Female
  Weight: 3.2 kg

DRUGS (1)
  1. APROVEL [Suspect]
     Route: 064
     Dates: end: 20100211

REACTIONS (1)
  - Umbilical hernia [Unknown]
